FAERS Safety Report 5939122-2 (Version None)
Quarter: 2008Q4

REPORT INFORMATION
  Report Type: 
  Country: None (occurrence: None)
  Receive Date: 20081103
  Receipt Date: 20081030
  Transmission Date: 20090506
  Serious: Yes (Other)
  Sender: FDA-Public Use
  Company Number: B0544586A

PATIENT
  Age: 64 Year
  Sex: Male

DRUGS (1)
  1. ZYNTABAC [Suspect]
     Dosage: 300MG PER DAY
     Route: 048

REACTIONS (2)
  - AGEUSIA [None]
  - ANOSMIA [None]
